FAERS Safety Report 9901547 (Version 3)
Quarter: 2015Q3

REPORT INFORMATION
  Report Type: Spontaneous
  Country: US (occurrence: US)
  Receive Date: 20140217
  Receipt Date: 20150810
  Transmission Date: 20151125
  Serious: No
  Sender: FDA-Public Use
  Company Number: US-GILEAD-2011-0042264

PATIENT
  Age: 51 Year
  Sex: Female

DRUGS (2)
  1. LETAIRIS [Suspect]
     Active Substance: AMBRISENTAN
     Indication: PRODUCT USED FOR UNKNOWN INDICATION
     Route: 048
     Dates: start: 20100219
  2. TYVASO [Concomitant]
     Active Substance: TREPROSTINIL

REACTIONS (3)
  - Cough [Unknown]
  - Headache [Not Recovered/Not Resolved]
  - Throat irritation [Not Recovered/Not Resolved]
